FAERS Safety Report 4743348-3 (Version None)
Quarter: 2005Q3

REPORT INFORMATION
  Report Type: 
  Country: None (occurrence: None)
  Receive Date: 20050809
  Receipt Date: 20050802
  Transmission Date: 20060218
  Serious: Yes (Hospitalization)
  Sender: FDA-Public Use
  Company Number: HQWYE726628JUN04

PATIENT
  Age: 21 Year
  Sex: Female

DRUGS (6)
  1. EFFEXOR XR [Suspect]
     Indication: DEPRESSION
     Dosage: SEE IMAGE
     Route: 048
     Dates: start: 20030701, end: 20040401
  2. EFFEXOR XR [Suspect]
     Indication: DEPRESSION
     Dosage: SEE IMAGE
     Route: 048
     Dates: start: 20040613, end: 20040601
  3. EFFEXOR XR [Suspect]
     Indication: DEPRESSION
     Dosage: SEE IMAGE
     Route: 048
     Dates: start: 20040401, end: 20040612
  4. EFFEXOR XR [Suspect]
     Indication: DEPRESSION
     Dosage: SEE IMAGE
     Route: 048
     Dates: start: 20040601, end: 20040618
  5. DEPAKOTE [Concomitant]
  6. TRAZODONE (TRAZODONE) [Concomitant]

REACTIONS (7)
  - AGGRESSION [None]
  - DRUG EXPOSURE DURING PREGNANCY [None]
  - OVERDOSE [None]
  - PREGNANCY [None]
  - PSYCHOTIC DISORDER [None]
  - SUICIDE ATTEMPT [None]
  - TREATMENT NONCOMPLIANCE [None]
